FAERS Safety Report 4377778-9 (Version None)
Quarter: 2004Q2

REPORT INFORMATION
  Report Type: 
  Country: None (occurrence: None)
  Receive Date: 20040615
  Receipt Date: 20040615
  Transmission Date: 20050107
  Serious: Yes (Hospitalization)
  Sender: FDA-Public Use
  Company Number: None

PATIENT
  Sex: Female

DRUGS (7)
  1. SEROQUEL [Suspect]
     Indication: BIPOLAR DISORDER
     Dosage: 200 MG 5 TIMES ORAL
     Route: 048
  2. FLUOXETINE [Suspect]
     Indication: BIPOLAR DISORDER
     Dosage: 20 MG 1 BID ORAL
     Route: 048
  3. TOPAMAX [Concomitant]
  4. TRAZODONE HCL [Concomitant]
  5. SINGULAIR [Concomitant]
  6. NASONEX [Concomitant]
  7. GABITRIL [Concomitant]

REACTIONS (1)
  - SEROTONIN SYNDROME [None]
